FAERS Safety Report 20795402 (Version 1)
Quarter: 2022Q2

REPORT INFORMATION
  Report Type: Spontaneous
  Country: ZA (occurrence: ZA)
  Receive Date: 20220506
  Receipt Date: 20220506
  Transmission Date: 20220721
  Serious: Yes (Other)
  Sender: FDA-Public Use
  Company Number: ZA-PFIZER INC-202200619888

PATIENT
  Sex: Female

DRUGS (1)
  1. CYKLOKAPRON [Suspect]
     Active Substance: TRANEXAMIC ACID
     Indication: Rectal prolapse
     Dosage: UNK
     Route: 013

REACTIONS (4)
  - Seizure [Unknown]
  - Hemiparesis [Unknown]
  - Aphasia [Unknown]
  - Incorrect route of product administration [Unknown]
